FAERS Safety Report 13375555 (Version 1)
Quarter: 2017Q1

REPORT INFORMATION
  Report Type: Spontaneous
  Country: DE (occurrence: DE)
  Receive Date: 20170328
  Receipt Date: 20170328
  Transmission Date: 20170429
  Serious: Yes (Other)
  Sender: FDA-Public Use
  Company Number: DE-AMGEN-DEUSP2017045173

PATIENT
  Age: 59 Year
  Sex: Female

DRUGS (1)
  1. REPATHA [Suspect]
     Active Substance: EVOLOCUMAB
     Indication: HYPERLIPIDAEMIA
     Dosage: 140 MG, UNK
     Route: 058
     Dates: start: 20161222, end: 20170306

REACTIONS (6)
  - Dysphonia [Not Recovered/Not Resolved]
  - Laryngeal oedema [Not Recovered/Not Resolved]
  - Swelling face [Not Recovered/Not Resolved]
  - Muscular weakness [Not Recovered/Not Resolved]
  - Local swelling [Not Recovered/Not Resolved]
  - Eyelid oedema [Not Recovered/Not Resolved]

NARRATIVE: CASE EVENT DATE: 20170306
